FAERS Safety Report 4801508-7 (Version None)
Quarter: 2005Q4

REPORT INFORMATION
  Report Type: 
  Country: None (occurrence: None)
  Receive Date: 20051011
  Receipt Date: 20050927
  Transmission Date: 20060501
  Serious: Yes (Hospitalization, Other)
  Sender: FDA-Public Use
  Company Number: 2005134726

PATIENT
  Sex: Female

DRUGS (3)
  1. DETROL LA [Suspect]
     Indication: INCONTINENCE
     Dosage: 4 MG (4 MG, 1 IN 1 D),ORAL
     Route: 048
     Dates: start: 19900101
  2. VERAPAMIL [Concomitant]
  3. CELEXA (CITALOPRAM HYDROBOMIDE) [Concomitant]

REACTIONS (4)
  - BLOOD PRESSURE INADEQUATELY CONTROLLED [None]
  - DYSPHAGIA [None]
  - GASTRIC BYPASS [None]
  - URINARY INCONTINENCE [None]
